FAERS Safety Report 5957633-0 (Version None)
Quarter: 2008Q4

REPORT INFORMATION
  Report Type: 
  Country: None (occurrence: None)
  Receive Date: 20081119
  Receipt Date: 20081117
  Transmission Date: 20090506
  Serious: Yes (Hospitalization)
  Sender: FDA-Public Use
  Company Number: AU-BRISTOL-MYERS SQUIBB COMPANY-13544978

PATIENT
  Age: 74 Year
  Sex: Female

DRUGS (10)
  1. AVAPRO [Suspect]
     Route: 048
     Dates: end: 20050112
  2. FRUSEMIDE [Suspect]
     Dates: start: 20050110, end: 20050112
  3. MOBIC [Suspect]
     Dosage: MOBIC TABLET.
     Route: 048
     Dates: start: 20041230, end: 20050112
  4. NEORAL [Concomitant]
  5. VENLAFAXINE HCL [Concomitant]
  6. DILTIAZEM HCL [Concomitant]
  7. TRIMETHOPRIM [Concomitant]
  8. METHYLDOPA [Concomitant]
  9. ALU-TAB [Concomitant]
  10. SOMAC [Concomitant]

REACTIONS (1)
  - RENAL FAILURE ACUTE [None]
